FAERS Safety Report 10518666 (Version 1)
Quarter: 2014Q4

REPORT INFORMATION
  Report Type: Spontaneous
  Country: US (occurrence: None)
  Receive Date: 20141014
  Receipt Date: 20141014
  Transmission Date: 20150528
  Serious: Yes (Hospitalization)
  Sender: FDA-Public Use
  Company Number: None

PATIENT
  Age: 70 Year
  Sex: Male
  Weight: 97.52 kg

DRUGS (13)
  1. VIT. C [Concomitant]
  2. COENZYME Q10 [Concomitant]
     Active Substance: UBIDECARENONE
  3. RAMIPRIL. [Concomitant]
     Active Substance: RAMIPRIL
  4. LANTUS [Concomitant]
     Active Substance: INSULIN GLARGINE
  5. EVENING PRIMROSE OIL [Concomitant]
     Active Substance: EVENING PRIMROSE OIL
  6. NOVOLOG [Concomitant]
     Active Substance: INSULIN ASPART
  7. ZANTAC [Concomitant]
     Active Substance: RANITIDINE HYDROCHLORIDE
  8. ASPIRIN. [Concomitant]
     Active Substance: ASPIRIN
  9. INVOKANA [Suspect]
     Active Substance: CANAGLIFLOZIN
     Indication: DIABETES MELLITUS
     Dosage: 1-100 MG/DAY IN THE AM 1-100 MG/DAY IN THE AM BY MOUTH
     Route: 048
     Dates: start: 20140201, end: 20140417
  10. METFORMIN [Concomitant]
     Active Substance: METFORMIN HYDROCHLORIDE
  11. SYMLIN [Concomitant]
     Active Substance: PRAMLINTIDE ACETATE
  12. LIPITOR [Concomitant]
     Active Substance: ATORVASTATIN CALCIUM
  13. MULTIVITAMIN [Concomitant]
     Active Substance: VITAMINS

REACTIONS (6)
  - Hypophagia [None]
  - Dehydration [None]
  - Fungal infection [None]
  - Kidney infection [None]
  - Nephrolithiasis [None]
  - Malaise [None]

NARRATIVE: CASE EVENT DATE: 20140417
